FAERS Safety Report 7683869-7 (Version None)
Quarter: 2011Q3

REPORT INFORMATION
  Report Type: 
  Country: None (occurrence: None)
  Receive Date: 20110815
  Receipt Date: 20110803
  Transmission Date: 20111222
  Serious: Yes (Hospitalization, Other)
  Sender: FDA-Public Use
  Company Number: US-BAYER-2011-028770

PATIENT
  Age: 18 Year
  Sex: Female
  Weight: 52.154 kg

DRUGS (6)
  1. YAZ [Suspect]
     Indication: DYSMENORRHOEA
  2. FLUCONAZOLE [Concomitant]
  3. YAZ [Suspect]
     Indication: ACNE
     Dosage: UNK
     Dates: start: 20080601, end: 20091201
  4. SERTRALINE HYDROCHLORIDE [Concomitant]
     Indication: ANXIETY
     Dosage: UNK
     Dates: start: 20090201
  5. AZITHROMYCIN [Concomitant]
  6. NEXIUM [Concomitant]

REACTIONS (4)
  - BILIARY DYSKINESIA [None]
  - MENTAL DISORDER [None]
  - ANXIETY [None]
  - GALLBLADDER DISORDER [None]
